FAERS Safety Report 5143822-4 (Version None)
Quarter: 2006Q4

REPORT INFORMATION
  Report Type: 
  Country: None (occurrence: None)
  Receive Date: 20061102
  Receipt Date: 20061102
  Transmission Date: 20070319
  Serious: Yes (Hospitalization)
  Sender: FDA-Public Use
  Company Number: None

PATIENT
  Age: 31 Year
  Sex: Female
  Weight: 106.1417 kg

DRUGS (7)
  1. EFFEXOR XR [Suspect]
     Indication: ANXIETY
     Dosage: 75 MG 1 EVERY MORNING PO
     Route: 048
     Dates: start: 20000101
  2. EFFEXOR XR [Suspect]
     Indication: BIPOLAR DISORDER
     Dosage: 75 MG 1 EVERY MORNING PO
     Route: 048
     Dates: start: 20000101
  3. EFFEXOR XR [Suspect]
     Indication: DEPRESSION
     Dosage: 75 MG 1 EVERY MORNING PO
     Route: 048
     Dates: start: 20000101
  4. EFFEXOR XR [Suspect]
     Indication: ANXIETY
     Dosage: 150 MG 1 EVERY MORNNG PO
     Route: 048
  5. EFFEXOR XR [Suspect]
     Indication: BIPOLAR DISORDER
     Dosage: 150 MG 1 EVERY MORNNG PO
     Route: 048
  6. EFFEXOR XR [Suspect]
     Indication: DEPRESSION
     Dosage: 150 MG 1 EVERY MORNNG PO
     Route: 048
  7. XANAX [Concomitant]

REACTIONS (9)
  - ACTIVITIES OF DAILY LIVING IMPAIRED [None]
  - DISTURBANCE IN ATTENTION [None]
  - DRUG DOSE OMISSION [None]
  - DYSSTASIA [None]
  - FEAR [None]
  - IMPAIRED DRIVING ABILITY [None]
  - MOTOR DYSFUNCTION [None]
  - SPEECH DISORDER [None]
  - VISION BLURRED [None]
